FAERS Safety Report 10378930 (Version 1)
Quarter: 2014Q3

REPORT INFORMATION
  Report Type: Spontaneous
  Country: US (occurrence: US)
  Receive Date: 20140812
  Receipt Date: 20140812
  Transmission Date: 20150326
  Serious: Yes (Other)
  Sender: FDA-Public Use
  Company Number: US-PFIZER INC-2014220474

PATIENT

DRUGS (8)
  1. KEPPRA [Suspect]
     Active Substance: LEVETIRACETAM
     Indication: EPILEPSY
     Dosage: UNK
     Dates: start: 2009
  2. TEGRETOL [Suspect]
     Active Substance: CARBAMAZEPINE
     Indication: CONVULSION
     Dosage: UNK
     Dates: start: 2010
  3. KEPPRA [Suspect]
     Active Substance: LEVETIRACETAM
     Dosage: 4000 MG, DAILY
     Dates: start: 2011
  4. VIMPAT [Suspect]
     Active Substance: LACOSAMIDE
     Indication: EPILEPSY
     Dosage: 200 OF VIMPAT/DAY
  5. KEPPRA [Suspect]
     Active Substance: LEVETIRACETAM
     Dosage: 2000 MG, DAILY
  6. DILANTIN-125 [Suspect]
     Active Substance: PHENYTOIN
     Indication: CONVULSION
     Dosage: UNK
     Dates: start: 2009, end: 2009
  7. ATIVAN [Suspect]
     Active Substance: LORAZEPAM
     Indication: CONVULSION
     Dosage: UNK, AS NEEDED
  8. TOPAMAX [Suspect]
     Active Substance: TOPIRAMATE
     Indication: EPILEPSY
     Dosage: 800 OF TOPAMAX/DAY
     Dates: start: 2010

REACTIONS (3)
  - Suicidal ideation [Unknown]
  - Drug ineffective [Unknown]
  - Depression [Unknown]
